FAERS Safety Report 23422189 (Version 2)
Quarter: 2025Q1

REPORT INFORMATION
  Report Type: Report from Study
  Country: US (occurrence: US)
  Receive Date: 20240119
  Receipt Date: 20250227
  Transmission Date: 20250409
  Serious: Yes (Other)
  Sender: TAKEDA
  Company Number: US-TAKEDA-2023TUS067932

PATIENT
  Sex: Male

DRUGS (1)
  1. MARIBAVIR [Suspect]
     Active Substance: MARIBAVIR
     Indication: Cytomegalovirus infection
     Dosage: 200 MILLIGRAM, BID
     Dates: start: 20230609

REACTIONS (5)
  - Ear neoplasm malignant [Recovered/Resolved]
  - Anosmia [Unknown]
  - Product packaging difficult to open [Unknown]
  - Incorrect dose administered [Unknown]
  - Ageusia [Unknown]
